FAERS Safety Report 8098579-4 (Version None)
Quarter: 2012Q1

REPORT INFORMATION
  Report Type: 
  Country: None (occurrence: None)
  Receive Date: 20120129
  Receipt Date: 20111021
  Transmission Date: 20120608
  Serious: No
  Sender: FDA-Public Use
  Company Number: US-ABBOTT-11P-163-0867573-00

PATIENT
  Sex: Female
  Weight: 74.91 kg

DRUGS (4)
  1. MERCAPTOPURINE [Concomitant]
     Indication: CROHN'S DISEASE
  2. ASACOL [Concomitant]
     Indication: CROHN'S DISEASE
  3. HUMIRA [Suspect]
     Indication: CROHN'S DISEASE
     Dates: start: 20110901
  4. IRON [Concomitant]
     Indication: MINERAL SUPPLEMENTATION

REACTIONS (5)
  - APPLICATION SITE REACTION [None]
  - INJECTION SITE URTICARIA [None]
  - INJECTION SITE RASH [None]
  - PRURITUS [None]
  - RASH [None]
